FAERS Safety Report 26218365 (Version 1)
Quarter: 2025Q4

REPORT INFORMATION
  Report Type: Report from Study
  Country: IN (occurrence: IN)
  Receive Date: 20251231
  Receipt Date: 20251231
  Transmission Date: 20260118
  Serious: Yes (Death, Other)
  Sender: PFIZER
  Company Number: IN-PFIZER INC-PV202500141852

PATIENT
  Age: 71 Year
  Sex: Male

DRUGS (7)
  1. CRIZOTINIB [Suspect]
     Active Substance: CRIZOTINIB
     Indication: Non-small cell lung cancer metastatic
     Dosage: 250 MG, 2X/DAY
     Route: 048
     Dates: start: 202511
  2. BUVALOR [Concomitant]
     Indication: Pain
     Dosage: 10 UG, WEEKLY (TO BE APPLIED AT HAIR FREE AREA)
  3. TRAMADOL [Concomitant]
     Active Substance: TRAMADOL
     Indication: Pain
     Dosage: 50 MG, 2X/DAY (CAN BE TAKEN UPTO THRICE A DAY FOR 15 DAYS)
  4. DOLO 650 [Concomitant]
     Indication: Pain
     Dosage: 650 MG, 3X/DAY FOR 1 MONTH
  5. PREGABA NT [Concomitant]
     Indication: Pain
     Dosage: 1 DF, 1X/DAY (ONCE DAILY AT BEDTIME)
  6. LOOZ [Concomitant]
     Indication: Constipation
     Dosage: UNK, 1X/DAY (4 TST ONCE DAILY AT BEDTIME)
  7. LAXOPEG [Concomitant]
     Indication: Constipation
     Dosage: UNK

REACTIONS (3)
  - Death [Fatal]
  - Vomiting [Unknown]
  - Nausea [Unknown]

NARRATIVE: CASE EVENT DATE: 20251101
